FAERS Safety Report 4286372-X (Version None)
Quarter: 2004Q1

REPORT INFORMATION
  Report Type: 
  Country: None (occurrence: None)
  Receive Date: 20040121
  Receipt Date: 20030506
  Transmission Date: 20041129
  Serious: Yes (Other)
  Sender: FDA-Public Use
  Company Number: A03200300968

PATIENT
  Age: 77 Year
  Sex: Female
  Weight: 49.8957 kg

DRUGS (12)
  1. PLAVIX [Suspect]
     Indication: CEREBROVASCULAR ACCIDENT PROPHYLAXIS
     Dosage: 75 MG QD-ORAL
     Route: 048
     Dates: start: 20011201, end: 20030507
  2. PLAVIX [Suspect]
     Indication: MYOCARDIAL INFARCTION
     Dosage: 75 MG QD-ORAL
     Route: 048
     Dates: start: 20011201, end: 20030507
  3. PLAVIX [Suspect]
     Indication: PROPHYLAXIS
     Dosage: 75 MG QD-ORAL
     Route: 048
     Dates: start: 20011201, end: 20030507
  4. THEOPHYLLINE [Concomitant]
  5. ALBUTEROL [Concomitant]
  6. BECLOMETHASONE DIPROPIONATE [Concomitant]
  7. MULTIVITAMINS AND MINERALS [Concomitant]
  8. LANSOPRAZOLE [Concomitant]
  9. DILTIAZEM HYDROCHLORIDE [Concomitant]
  10. VALSARTAN [Concomitant]
  11. FUROSEMIDE [Concomitant]
  12. ^ALLERGY SHOTS^ [Concomitant]

REACTIONS (14)
  - CONTUSION [None]
  - DIARRHOEA [None]
  - DRY SKIN [None]
  - FAECES DISCOLOURED [None]
  - GINGIVAL BLEEDING [None]
  - HAEMATEMESIS [None]
  - HAEMORRHOIDAL HAEMORRHAGE [None]
  - LARYNGITIS [None]
  - NAIL DISORDER [None]
  - OEDEMA PERIPHERAL [None]
  - PAIN [None]
  - PRURITUS [None]
  - RASH [None]
  - URTICARIA [None]
